FAERS Safety Report 6054163-5 (Version None)
Quarter: 2009Q1

REPORT INFORMATION
  Report Type: 
  Country: None (occurrence: None)
  Receive Date: 20090127
  Receipt Date: 20090121
  Transmission Date: 20090719
  Serious: Yes (Hospitalization)
  Sender: FDA-Public Use
  Company Number: US-ABBOTT-09P-163-0499255-00

PATIENT
  Sex: Female
  Weight: 55.842 kg

DRUGS (3)
  1. HUMIRA [Suspect]
     Indication: JUVENILE ARTHRITIS
     Route: 058
     Dates: start: 20081015, end: 20090109
  2. LEVAQUIN [Suspect]
     Indication: KIDNEY INFECTION
     Route: 048
     Dates: start: 20081218, end: 20081218
  3. CELEBREX [Concomitant]
     Indication: JUVENILE ARTHRITIS
     Dosage: UNKNOWN

REACTIONS (7)
  - BACK PAIN [None]
  - DIARRHOEA [None]
  - FLUID INTAKE REDUCED [None]
  - GASTROENTERITIS VIRAL [None]
  - KIDNEY INFECTION [None]
  - PYREXIA [None]
  - VOMITING [None]
